FAERS Safety Report 16792709 (Version 2)
Quarter: 2019Q3

REPORT INFORMATION
  Report Type: Spontaneous
  Country: DE (occurrence: DE)
  Receive Date: 20190910
  Receipt Date: 20190916
  Transmission Date: 20191005
  Serious: Yes (Hospitalization)
  Sender: FDA-Public Use
  Company Number: PHHY2019DE209855

PATIENT
  Sex: Female
  Weight: 51 kg

DRUGS (4)
  1. PARACETAMOL [Concomitant]
     Active Substance: ACETAMINOPHEN
     Indication: PAIN
     Dosage: 500 MG, TID (2-2-2)
     Route: 065
     Dates: start: 20190902
  2. HYRIMOZ [Suspect]
     Active Substance: ADALIMUMAB-ADAZ
     Indication: PRODUCT USED FOR UNKNOWN INDICATION
     Dosage: 40 MG, UNK
     Route: 065
     Dates: start: 20190819
  3. OMEP [Concomitant]
     Active Substance: OMEPRAZOLE
     Indication: GASTROOESOPHAGEAL REFLUX DISEASE
     Dosage: 40 MG, BID (1-0-1)
     Route: 065
     Dates: start: 20190902
  4. DEKRISTOL [Concomitant]
     Active Substance: CHOLECALCIFEROL
     Indication: VITAMIN D DEFICIENCY
     Dosage: 20000 MG, QW
     Route: 065
     Dates: start: 20190516

REACTIONS (3)
  - Rectal polyp [Recovered/Resolved]
  - Post procedural haemorrhage [Recovered/Resolved]
  - Anal polyp [Recovered/Resolved]

NARRATIVE: CASE EVENT DATE: 20190902
